FAERS Safety Report 9334346 (Version 1)
Quarter: 2013Q2

REPORT INFORMATION
  Report Type: Spontaneous
  Country: US (occurrence: US)
  Receive Date: 20130606
  Receipt Date: 20130606
  Transmission Date: 20140414
  Serious: No
  Sender: FDA-Public Use
  Company Number: US-AMGEN-USASP2012076478

PATIENT
  Age: 68 Year
  Sex: Female

DRUGS (4)
  1. PROLIA [Suspect]
     Indication: OSTEOPOROSIS POSTMENOPAUSAL
     Dosage: UNK
     Dates: start: 20120607
  2. CENTRUM SILVER                     /02363801/ [Concomitant]
     Dosage: UNK
  3. CALCIUM [Concomitant]
     Dosage: 600 MG, BID
  4. VITAMIN D                          /00107901/ [Concomitant]
     Dosage: UNK UNK, QD

REACTIONS (2)
  - Weight decreased [Unknown]
  - Alopecia [Not Recovered/Not Resolved]
